FAERS Safety Report 21578168 (Version 1)
Quarter: 2022Q4

REPORT INFORMATION
  Report Type: Report from Study
  Country: US (occurrence: US)
  Receive Date: 20221110
  Receipt Date: 20221110
  Transmission Date: 20230112
  Serious: Yes (Hospitalization)
  Sender: FDA-Public Use
  Company Number: US-ORPHANEU-2022005545

PATIENT

DRUGS (15)
  1. CYSTADANE [Suspect]
     Active Substance: BETAINE
     Indication: Methylmalonic aciduria
     Dosage: 4 GRAM, BID
     Route: 048
     Dates: start: 201409
  2. CYSTADANE [Suspect]
     Active Substance: BETAINE
     Dosage: 5 GRAM, BID
     Route: 048
  3. INFLUENZA VIRUS VACCINE [Suspect]
     Active Substance: INFLUENZA VIRUS VACCINE
     Indication: Prophylaxis
     Dosage: UNK, SINGLE
  4. DIASTAT [Concomitant]
     Active Substance: DIAZEPAM
     Indication: Seizure
  5. EPIDIOLEX [Concomitant]
     Active Substance: CANNABIDIOL
     Indication: Seizure
  6. HYDROXOCOBALAMIN [Concomitant]
     Active Substance: HYDROXOCOBALAMIN
     Indication: Hypovitaminosis
  7. LEVOCARNITINE [Concomitant]
     Active Substance: LEVOCARNITINE
     Indication: Amino acid level decreased
  8. MIRALAX [Concomitant]
     Active Substance: POLYETHYLENE GLYCOL 3350
     Indication: Constipation
  9. ONFI [Concomitant]
     Active Substance: CLOBAZAM
     Indication: Seizure
  10. PEDIASURE [CARBOHYDRATES NOS;FATS NOS;MINERALS NOS;PROTEIN;VITAMINS NO [Concomitant]
     Indication: Nutritional supplementation
  11. PRO PHREE [Concomitant]
     Indication: Nutritional supplementation
  12. TOPAMAX [Concomitant]
     Active Substance: TOPIRAMATE
     Indication: Seizure
  13. VIMPAT [Concomitant]
     Active Substance: LACOSAMIDE
     Indication: Seizure
  14. ZONEGRAN [Concomitant]
     Active Substance: ZONISAMIDE
     Indication: Seizure
  15. PROPIMEX-2 [Concomitant]
     Indication: Nutritional supplementation

REACTIONS (5)
  - Influenza [Recovering/Resolving]
  - Pyrexia [Recovering/Resolving]
  - Blood potassium decreased [Recovering/Resolving]
  - Diarrhoea [Not Recovered/Not Resolved]
  - Off label use [Recovered/Resolved]

NARRATIVE: CASE EVENT DATE: 20140901
